FAERS Safety Report 5104531-0 (Version None)
Quarter: 2006Q3

REPORT INFORMATION
  Report Type: 
  Country: None (occurrence: None)
  Receive Date: 20060731
  Receipt Date: 20050805
  Transmission Date: 20061208
  Serious: Yes (Other)
  Sender: FDA-Public Use
  Company Number: US-JNJFOC-20050802238

PATIENT
  Age: 20 Year
  Sex: Male

DRUGS (2)
  1. RISPERDAL [Suspect]
     Indication: BIPOLAR DISORDER
     Dosage: 2 MG, IN 1 DAY, ORAL
     Route: 048
     Dates: start: 20030101, end: 20050201
  2. RISPERDAL CONSTA [Suspect]
     Indication: BIPOLAR DISORDER
     Dosage: INTRA-MUSCULAR
     Route: 030
     Dates: start: 20050201

REACTIONS (3)
  - HYPERPHAGIA [None]
  - SOMNOLENCE [None]
  - WEIGHT INCREASED [None]
